FAERS Safety Report 21607953 (Version 1)
Quarter: 2022Q4

REPORT INFORMATION
  Report Type: Spontaneous
  Country: US (occurrence: US)
  Receive Date: 20221117
  Receipt Date: 20221117
  Transmission Date: 20230113
  Serious: Yes (Hospitalization, Other)
  Sender: FDA-Public Use
  Company Number: US-drreddys-SPO/USA/22/0157022

PATIENT
  Age: 56 Year
  Sex: Male

DRUGS (2)
  1. DIVALPROEX SODIUM [Suspect]
     Active Substance: DIVALPROEX SODIUM
     Indication: Bipolar disorder
     Dosage: INTENTIONALLY INGESTED 12 TABLETS OF 500-MG
     Route: 048
  2. DIVALPROEX SODIUM [Suspect]
     Active Substance: DIVALPROEX SODIUM
     Indication: Schizophrenia

REACTIONS (5)
  - Toxicity to various agents [Recovered/Resolved]
  - Hyperammonaemia [Recovered/Resolved]
  - Sinus tachycardia [Recovered/Resolved]
  - Abdominal pain [Recovered/Resolved]
  - Intentional overdose [Recovered/Resolved]
